FAERS Safety Report 14098375 (Version 1)
Quarter: 2017Q4

REPORT INFORMATION
  Report Type: Spontaneous
  Country: PT (occurrence: IE)
  Receive Date: 20171017
  Receipt Date: 20171017
  Transmission Date: 20180321
  Serious: Yes (Other)
  Sender: FDA-Public Use
  Company Number: PT-SUNOVION-2017SUN004410

PATIENT

DRUGS (2)
  1. ZEBINIX [Suspect]
     Active Substance: ESLICARBAZEPINE ACETATE
     Indication: PRODUCT USED FOR UNKNOWN INDICATION
     Dosage: 800 MG, AT NIGHT
     Route: 065
     Dates: start: 201707
  2. PHENOBARBITONE [Concomitant]
     Active Substance: PHENOBARBITAL

REACTIONS (4)
  - Seizure [Unknown]
  - Inappropriate schedule of drug administration [Unknown]
  - Drug dose titration not performed [Unknown]
  - Wrong technique in product usage process [Unknown]
